FAERS Safety Report 21895428 (Version 1)
Quarter: 2023Q1

REPORT INFORMATION
  Report Type: Spontaneous
  Country: IT (occurrence: IT)
  Receive Date: 20230123
  Receipt Date: 20230123
  Transmission Date: 20230417
  Serious: Yes (Other)
  Sender: FDA-Public Use
  Company Number: IT-SUN PHARMACEUTICAL INDUSTRIES LTD-2020R1-250083

PATIENT
  Age: 62 Year
  Sex: Male

DRUGS (4)
  1. CARBIDOPA AND LEVODOPA [Suspect]
     Active Substance: CARBIDOPA\LEVODOPA
     Indication: Parkinson^s disease
     Dosage: 250/25 MG
     Route: 048
  2. CARBIDOPA AND LEVODOPA [Suspect]
     Active Substance: CARBIDOPA\LEVODOPA
     Dosage: 250/25 MG (HALF TABLET)
     Route: 048
  3. ENTACAPONE [Suspect]
     Active Substance: ENTACAPONE
     Indication: Parkinson^s disease
     Dosage: 200MG 8DAILY
     Route: 048
  4. ENTACAPONE [Suspect]
     Active Substance: ENTACAPONE
     Dosage: 200MG, 6 DAILY
     Route: 048

REACTIONS (1)
  - Dyskinesia hyperpyrexia syndrome [Recovered/Resolved]
